FAERS Safety Report 7950607-X (Version None)
Quarter: 2011Q4

REPORT INFORMATION
  Report Type: 
  Country: None (occurrence: None)
  Receive Date: 20111130
  Receipt Date: 20111121
  Transmission Date: 20120403
  Serious: Yes (Other)
  Sender: FDA-Public Use
  Company Number: US-ROCHE-1015571

PATIENT
  Sex: Female

DRUGS (3)
  1. FOSAMAX [Suspect]
     Indication: OSTEOPOROSIS
     Dates: start: 20000101, end: 20091001
  2. BONIVA [Suspect]
     Indication: OSTEOPOROSIS
     Dates: start: 20000101, end: 20091001
  3. ACTONEL [Suspect]
     Indication: OSTEOPOROSIS
     Dates: start: 20000101, end: 20091001

REACTIONS (3)
  - LOW TURNOVER OSTEOPATHY [None]
  - FEMUR FRACTURE [None]
  - EMOTIONAL DISTRESS [None]
